FAERS Safety Report 8946973 (Version 1)
Quarter: 2012Q4

REPORT INFORMATION
  Report Type: 
  Country: IT (occurrence: IT)
  Receive Date: 20121205
  Receipt Date: 20121205
  Transmission Date: 20130627
  Serious: Yes (Other)
  Sender: FDA-Public Use
  Company Number: IT-PFIZER INC-2012306353

PATIENT
  Age: 49 Year
  Sex: Male
  Weight: 65 kg

DRUGS (6)
  1. GABAPENTIN [Suspect]
     Indication: POLYNEUROPATHY
     Dosage: 1200 mg, 1x/day
     Route: 048
  2. CIPRALEX [Concomitant]
     Route: 065
  3. LUMIGAN [Concomitant]
     Route: 065
  4. BACLOFEN [Concomitant]
     Route: 065
  5. TAMSULOSIN HYDROCHLORIDE [Concomitant]
     Route: 065
  6. TIMOLOL MALEATE [Concomitant]
     Route: 065

REACTIONS (2)
  - Hyperpyrexia [Recovered/Resolved]
  - Diarrhoea [Recovered/Resolved]
